FAERS Safety Report 14647744 (Version 2)
Quarter: 2018Q1

REPORT INFORMATION
  Report Type: Report from Study
  Country: ES (occurrence: ES)
  Receive Date: 20180316
  Receipt Date: 20180329
  Transmission Date: 20180509
  Serious: Yes (Life-Threatening, Hospitalization)
  Sender: FDA-Public Use
  Company Number: ES-PFIZER INC-2018110974

PATIENT
  Age: 67 Year
  Sex: Male

DRUGS (4)
  1. METHYLPREDNISOLONE. [Suspect]
     Active Substance: METHYLPREDNISOLONE
     Indication: PNEUMONIA INFLUENZAL
     Dosage: 20 MG, 1X/DAY
     Route: 048
     Dates: start: 20160226, end: 20160310
  2. PIPERACILINA + TAZOBACTAM [Concomitant]
     Active Substance: PIPERACILLIN SODIUM\TAZOBACTAM SODIUM
     Indication: ANTIBIOTIC PROPHYLAXIS
     Dosage: 12 G, 1X/DAY
     Route: 040
     Dates: start: 20160226, end: 20160309
  3. OSELTAMIVIR [Concomitant]
     Active Substance: OSELTAMIVIR
     Indication: PNEUMONIA INFLUENZAL
     Dosage: 250 MG, 1X/DAY
     Route: 048
     Dates: start: 20160226, end: 20160307
  4. TINZAPARIN SODIUM [Interacting]
     Active Substance: TINZAPARIN SODIUM
     Indication: AORTIC THROMBOSIS
     Dosage: 0.5 ML, 1X/DAY
     Route: 058
     Dates: start: 20160226, end: 20160301

REACTIONS (2)
  - Upper gastrointestinal haemorrhage [Recovered/Resolved]
  - Drug interaction [Recovered/Resolved]

NARRATIVE: CASE EVENT DATE: 20160301
